FAERS Safety Report 4425398-X (Version None)
Quarter: 2004Q3

REPORT INFORMATION
  Report Type: 
  Country: None (occurrence: None)
  Receive Date: 20040813
  Receipt Date: 20040622
  Transmission Date: 20050211
  Serious: Yes (Hospitalization)
  Sender: FDA-Public Use
  Company Number: JP-GLAXOSMITHKLINE-B0336815A

PATIENT
  Age: 77 Year
  Sex: Female
  Weight: 38 kg

DRUGS (9)
  1. PAXIL [Suspect]
     Indication: DEPRESSION
     Dosage: 10MG PER DAY
     Route: 048
     Dates: start: 20040618, end: 20040619
  2. BENET [Suspect]
     Indication: SPINAL COMPRESSION FRACTURE
     Dosage: 2.5MG PER DAY
     Route: 048
     Dates: start: 20040615
  3. MOBIC [Concomitant]
     Indication: SPINAL COMPRESSION FRACTURE
     Dosage: 10MG PER DAY
     Route: 048
     Dates: start: 20040617
  4. TAGAMET [Concomitant]
     Indication: RHEUMATOID ARTHRITIS
     Dosage: 400MG PER DAY
     Route: 048
     Dates: start: 20040122
  5. DOGMATYL [Concomitant]
     Indication: RHEUMATOID ARTHRITIS
     Dosage: 50MG PER DAY
     Route: 048
     Dates: start: 20040122
  6. ORCL [Concomitant]
     Indication: RHEUMATOID ARTHRITIS
     Dosage: 200MG PER DAY
     Route: 048
     Dates: start: 20040122
  7. RHEUMATREX [Concomitant]
     Indication: RHEUMATOID ARTHRITIS
     Dosage: 8MG PER DAY
     Route: 048
     Dates: start: 20040122
  8. PREDNISOLONE [Concomitant]
     Indication: RHEUMATOID ARTHRITIS
     Dosage: 3MG PER DAY
     Route: 048
     Dates: start: 20040122
  9. RIZE [Concomitant]
     Indication: RHEUMATOID ARTHRITIS
     Dosage: 10MG PER DAY
     Route: 048
     Dates: start: 20040122

REACTIONS (8)
  - CHILLS [None]
  - DECREASED APPETITE [None]
  - HEADACHE [None]
  - INAPPROPRIATE ANTIDIURETIC HORMONE SECRETION [None]
  - MALAISE [None]
  - PYREXIA [None]
  - VOMITING [None]
  - WHITE BLOOD CELL COUNT INCREASED [None]
